FAERS Safety Report 14503242 (Version 1)
Quarter: 2018Q1

REPORT INFORMATION
  Report Type: Spontaneous
  Country: CN (occurrence: CN)
  Receive Date: 20180208
  Receipt Date: 20180208
  Transmission Date: 20180509
  Serious: Yes (Hospitalization)
  Sender: FDA-Public Use
  Company Number: CN-BAYER-2018-020935

PATIENT
  Age: 71 Year
  Sex: Male
  Weight: 60 kg

DRUGS (3)
  1. ISOSORBIDE [ISOSORBIDE MONONITRATE] [Concomitant]
     Indication: CORONARY ARTERY DISEASE
     Dosage: 20 MG, BID
     Route: 048
     Dates: start: 20160907, end: 20171218
  2. LIPITOR [Concomitant]
     Active Substance: ATORVASTATIN CALCIUM
     Indication: CORONARY ARTERY DISEASE
     Dosage: 20 MG, QD
     Route: 048
     Dates: start: 20160907, end: 20171218
  3. BAYASPIRIN 100 MG [Suspect]
     Active Substance: ASPIRIN
     Indication: CORONARY ARTERY DISEASE
     Dosage: 100 MG, QD
     Route: 048
     Dates: start: 20160907, end: 20171218

REACTIONS (2)
  - Dizziness [Recovering/Resolving]
  - Faeces discoloured [Recovering/Resolving]

NARRATIVE: CASE EVENT DATE: 20171218
